FAERS Safety Report 4747270-8 (Version None)
Quarter: 2005Q3

REPORT INFORMATION
  Report Type: 
  Country: None (occurrence: None)
  Receive Date: 20050815
  Receipt Date: 20050510
  Transmission Date: 20060218
  Serious: No
  Sender: FDA-Public Use
  Company Number: USA050597692

PATIENT
  Age: 62 Year
  Sex: Male

DRUGS (4)
  1. CIALIS [Suspect]
     Indication: ERECTILE DYSFUNCTION
     Dosage: 20 MG
     Dates: start: 20040501
  2. LISINOPRIL (LISINOPRIL  00894001/) [Concomitant]
  3. ALLOPURINOL [Concomitant]
  4. LIPITOR [Concomitant]

REACTIONS (2)
  - BACK PAIN [None]
  - THERAPEUTIC RESPONSE DECREASED [None]
